FAERS Safety Report 7636914-9 (Version None)
Quarter: 2011Q3

REPORT INFORMATION
  Report Type: 
  Country: None (occurrence: None)
  Receive Date: 20110726
  Receipt Date: 20110718
  Transmission Date: 20111222
  Serious: Yes (Disabling, Other)
  Sender: FDA-Public Use
  Company Number: CA-ABBOTT-11P-028-0802978-00

PATIENT
  Sex: Male
  Weight: 136 kg

DRUGS (8)
  1. INSULIN [Concomitant]
     Indication: PRODUCT USED FOR UNKNOWN INDICATION
     Dosage: DAILY DOSE:  UNKNOWN
     Route: 065
     Dates: start: 20040101
  2. PERINDOPRIL ERBUMINE [Suspect]
     Indication: NEPHROPATHY
  3. PERINDOPRIL ERBUMINE [Suspect]
     Indication: HYPERTENSION
     Dosage: DAILY DOSE: 8 MILLIGRAM(S)
     Route: 048
     Dates: start: 20110421, end: 20110425
  4. FUROSEMIDE [Concomitant]
     Indication: PRODUCT USED FOR UNKNOWN INDICATION
     Dosage: DAILY DOSE:  UNKNOWN
     Route: 065
  5. ACETAMINOPHEN AND OXYCODONE HCL [Concomitant]
     Indication: PRODUCT USED FOR UNKNOWN INDICATION
     Dosage: DAILY DOSE:  UNKNOWN
     Route: 065
  6. SIMVASTATIN [Concomitant]
     Indication: PRODUCT USED FOR UNKNOWN INDICATION
     Dosage: DAILY DOSE:  UNKNOWN
     Route: 065
  7. ASPIRIN [Concomitant]
     Indication: PRODUCT USED FOR UNKNOWN INDICATION
     Dosage: DAILY DOSE:  UNKNOWN
     Route: 065
  8. MARIJUANA [Concomitant]
     Indication: PRODUCT USED FOR UNKNOWN INDICATION
     Dosage: DAILY DOSE:  UNKNOWN
     Route: 065

REACTIONS (15)
  - EPISTAXIS [None]
  - EYE HAEMORRHAGE [None]
  - DIZZINESS [None]
  - PARAESTHESIA [None]
  - DIABETIC RETINOPATHY [None]
  - VISUAL IMPAIRMENT [None]
  - ANGIOEDEMA [None]
  - DRUG INEFFECTIVE [None]
  - MACULAR OEDEMA [None]
  - HYPERHIDROSIS [None]
  - HEADACHE [None]
  - SINUS TACHYCARDIA [None]
  - BUNDLE BRANCH BLOCK RIGHT [None]
  - VASODILATATION [None]
  - DYSPNOEA [None]
